FAERS Safety Report 20120731 (Version 1)
Quarter: 2021Q4

REPORT INFORMATION
  Report Type: Spontaneous
  Country: US (occurrence: None)
  Receive Date: 20211126
  Receipt Date: 20211126
  Transmission Date: 20220303
  Serious: Yes (Other)
  Sender: FDA-Public Use
  Company Number: None

PATIENT
  Age: 67 Year
  Sex: Female

DRUGS (11)
  1. SECRET ANTIPERSPIRANT POWDER FRESH [Suspect]
     Active Substance: ALUMINUM CHLOROHYDRATE
     Indication: Hyperhidrosis
     Dosage: OTHER QUANTITY : 1 SPRAY(S);?FREQUENCY : AS NEEDED;?
     Route: 061
     Dates: start: 20210313, end: 20211125
  2. LANTHANUM [Concomitant]
     Active Substance: LANTHANUM
  3. LAMOTRIGINE [Concomitant]
     Active Substance: LAMOTRIGINE
  4. QUETIAPNE [Concomitant]
  5. VITAMINS [Concomitant]
     Active Substance: VITAMINS
  6. ATORVASTATIN [Concomitant]
     Active Substance: ATORVASTATIN
  7. METOPROLOL SUCCINATE [Concomitant]
     Active Substance: METOPROLOL SUCCINATE
  8. DICLOFENAC [Concomitant]
     Active Substance: DICLOFENAC
  9. ER ASPIRIN [Concomitant]
  10. CALCIUM [Concomitant]
     Active Substance: CALCIUM
  11. VITAMIN D3 [Concomitant]
     Active Substance: CHOLECALCIFEROL

REACTIONS (2)
  - Red blood cell count increased [None]
  - Blood disorder [None]

NARRATIVE: CASE EVENT DATE: 20210421
